FAERS Safety Report 7770461-9 (Version None)
Quarter: 2011Q3

REPORT INFORMATION
  Report Type: 
  Country: None (occurrence: None)
  Receive Date: 20110922
  Receipt Date: 20100830
  Transmission Date: 20111222
  Serious: No
  Sender: FDA-Public Use
  Company Number: US-ASTRAZENECA-2008UW01146

PATIENT
  Age: 46 Year
  Sex: Female
  Weight: 70.8 kg

DRUGS (13)
  1. SEROQUEL [Suspect]
     Route: 048
     Dates: start: 20051222, end: 20070511
  2. SEROQUEL [Suspect]
     Dosage: 25 MG-550 MG
     Route: 048
     Dates: start: 20060215
  3. SEROQUEL [Suspect]
     Dosage: 25 MG-550 MG
     Route: 048
     Dates: start: 20060215
  4. GEODON [Concomitant]
     Dates: start: 20100101
  5. SEROQUEL [Suspect]
     Indication: BIPOLAR DISORDER
     Route: 048
     Dates: start: 20020201, end: 20071101
  6. SEROQUEL [Suspect]
     Route: 048
     Dates: start: 20051222, end: 20070511
  7. SEROQUEL [Suspect]
     Route: 048
     Dates: start: 20051222, end: 20070511
  8. LEXAPRO [Concomitant]
     Route: 048
     Dates: start: 20060215
  9. SEROQUEL [Suspect]
     Indication: DEPRESSION
     Route: 048
     Dates: start: 20020201, end: 20071101
  10. SEROQUEL [Suspect]
     Indication: ANXIETY
     Route: 048
     Dates: start: 20020201, end: 20071101
  11. ABILIFY [Concomitant]
     Dates: start: 20060215
  12. SEROQUEL [Suspect]
     Dosage: 25 MG-550 MG
     Route: 048
     Dates: start: 20060215
  13. BUSPAR [Concomitant]
     Route: 048
     Dates: start: 20060215

REACTIONS (3)
  - DIABETIC COMPLICATION [None]
  - OBESITY [None]
  - TYPE 2 DIABETES MELLITUS [None]
